FAERS Safety Report 9905609 (Version 2)
Quarter: 2014Q2

REPORT INFORMATION
  Report Type: Spontaneous
  Country: US (occurrence: US)
  Receive Date: 20140218
  Receipt Date: 20140620
  Transmission Date: 20141212
  Serious: Yes (Hospitalization, Other)
  Sender: FDA-Public Use
  Company Number: US-009507513-1402USA005929

PATIENT
  Sex: Female

DRUGS (1)
  1. NUVARING [Suspect]
     Dosage: UNK
     Route: 067
     Dates: start: 2006, end: 20121012

REACTIONS (4)
  - Ectopic pregnancy [Recovered/Resolved]
  - Pulmonary embolism [Unknown]
  - Hyperlipidaemia [Unknown]
  - Unintended pregnancy [Recovered/Resolved]
